FAERS Safety Report 4903621-2 (Version None)
Quarter: 2006Q1

REPORT INFORMATION
  Report Type: 
  Country: None (occurrence: None)
  Receive Date: 20060208
  Receipt Date: 20060130
  Transmission Date: 20060701
  Serious: Yes (Other)
  Sender: FDA-Public Use
  Company Number: 2006AP00569

PATIENT
  Age: 62 Year
  Sex: Female
  Weight: 60 kg

DRUGS (4)
  1. ARIMIDEX [Suspect]
     Indication: BREAST CANCER
     Route: 048
     Dates: start: 20050604
  2. HERBESSER [Concomitant]
     Route: 048
  3. SIGMART [Concomitant]
     Route: 048
  4. LORAZEPAM [Concomitant]
     Route: 048

REACTIONS (2)
  - METRORRHAGIA [None]
  - UTERINE PROLAPSE [None]
